FAERS Safety Report 25031838 (Version 4)
Quarter: 2025Q4

REPORT INFORMATION
  Report Type: Spontaneous
  Country: EU (occurrence: EU)
  Receive Date: 20250303
  Receipt Date: 20251002
  Transmission Date: 20260118
  Serious: Yes (Other)
  Sender: PFIZER
  Company Number: None

PATIENT
  Age: 15 Year
  Sex: Male

DRUGS (3)
  1. AZITHROMYCIN [Suspect]
     Active Substance: AZITHROMYCIN
     Indication: Upper respiratory tract infection
     Dosage: 500 MG, DAILY (500 MG 3 TABLETS)
     Route: 065
     Dates: start: 20250113
  2. ACETAMINOPHEN [Suspect]
     Active Substance: ACETAMINOPHEN
     Indication: Upper respiratory tract infection
     Dosage: UNK, 3X/DAY (TID) (40 TABLETS)
     Route: 065
     Dates: start: 20250113, end: 20250115
  3. AMOXICILLIN\BROMHEXINE [Suspect]
     Active Substance: AMOXICILLIN\BROMHEXINE
     Indication: Upper respiratory tract infection
     Dosage: UNK
     Route: 065
     Dates: start: 20250113, end: 20250115

REACTIONS (2)
  - Erythema [Unknown]
  - Lip oedema [Unknown]

NARRATIVE: CASE EVENT DATE: 20250115
